FAERS Safety Report 6699821-4 (Version None)
Quarter: 2010Q2

REPORT INFORMATION
  Report Type: 
  Country: None (occurrence: None)
  Receive Date: 20100428
  Receipt Date: 20091228
  Transmission Date: 20101027
  Serious: No
  Sender: FDA-Public Use
  Company Number: A0836988A

PATIENT
  Age: 73 Year
  Sex: Male

DRUGS (1)
  1. LUXIQ [Suspect]
     Route: 050
     Dates: start: 20091001

REACTIONS (2)
  - ACCIDENTAL EXPOSURE [None]
  - EYE IRRITATION [None]
